FAERS Safety Report 5761633-3 (Version None)
Quarter: 2008Q2

REPORT INFORMATION
  Report Type: 
  Country: None (occurrence: None)
  Receive Date: 20080606
  Receipt Date: 20080603
  Transmission Date: 20081010
  Serious: Yes (Life-Threatening, Hospitalization)
  Sender: FDA-Public Use
  Company Number: CH-PFIZER INC-2007045808

PATIENT
  Sex: Male

DRUGS (46)
  1. IRINOTECAN HCL [Suspect]
     Indication: SMALL CELL LUNG CANCER STAGE UNSPECIFIED
     Route: 042
  2. IRINOTECAN HCL [Suspect]
     Route: 042
     Dates: start: 20070531, end: 20070531
  3. IRINOTECAN HCL [Suspect]
     Route: 042
     Dates: start: 20070615, end: 20070615
  4. CISPLATIN [Suspect]
     Indication: SMALL CELL LUNG CANCER STAGE UNSPECIFIED
     Route: 042
     Dates: start: 20070508, end: 20070508
  5. CISPLATIN [Suspect]
     Dosage: DAILY DOSE:80MG-FREQ:ON DAY 1 OF 21 DAY CYCLE
     Route: 042
     Dates: start: 20070531, end: 20070531
  6. VENTOLIN [Concomitant]
     Route: 055
     Dates: start: 20070514, end: 20070527
  7. FOSICOMP [Concomitant]
     Route: 048
     Dates: start: 20040101, end: 20070606
  8. FORTECORTIN [Concomitant]
     Route: 048
     Dates: start: 20070503, end: 20070604
  9. NEXIUM [Concomitant]
     Route: 048
     Dates: start: 20070514, end: 20070514
  10. NEXIUM [Concomitant]
     Route: 042
     Dates: start: 20070515, end: 20070517
  11. NEXIUM [Concomitant]
     Route: 048
     Dates: start: 20070518, end: 20070609
  12. NEXIUM [Concomitant]
     Route: 042
     Dates: start: 20070615, end: 20070621
  13. NEXIUM [Concomitant]
     Route: 048
  14. HALDOL [Concomitant]
     Route: 048
     Dates: start: 20070513, end: 20070514
  15. HALDOL [Concomitant]
     Route: 042
     Dates: start: 20070514, end: 20070514
  16. HALDOL [Concomitant]
     Route: 048
     Dates: start: 20070518, end: 20070530
  17. HALDOL [Concomitant]
     Route: 042
     Dates: start: 20070608, end: 20070616
  18. HALDOL [Concomitant]
     Route: 048
  19. CORDARONE [Concomitant]
     Route: 048
     Dates: start: 20070515, end: 20070609
  20. CORDARONE [Concomitant]
     Route: 048
     Dates: start: 20070519, end: 20070609
  21. ATROVENT [Concomitant]
     Route: 055
     Dates: start: 20070514, end: 20070527
  22. FAMVIR [Concomitant]
     Route: 048
     Dates: start: 20070523, end: 20070527
  23. NOZINAN [Concomitant]
     Route: 048
     Dates: start: 20070529, end: 20070609
  24. OEDEMEX [Concomitant]
     Route: 042
  25. OEDEMEX [Concomitant]
     Route: 048
  26. OEDEMEX [Concomitant]
     Route: 042
     Dates: start: 20070601, end: 20070621
  27. OEDEMEX [Concomitant]
     Route: 048
  28. MEPHAMESON [Concomitant]
     Route: 042
     Dates: start: 20070601, end: 20070604
  29. CIBACEN [Concomitant]
     Route: 048
     Dates: start: 20070609, end: 20070610
  30. LORAZEPAM [Concomitant]
     Route: 048
     Dates: start: 20070604, end: 20070604
  31. PRIMPERAN TAB [Concomitant]
     Route: 042
     Dates: start: 20070606, end: 20070616
  32. TIENAM [Concomitant]
     Route: 042
     Dates: start: 20070606, end: 20070616
  33. FUNGIZONE [Concomitant]
     Route: 042
     Dates: start: 20070606
  34. PETHIDINE [Concomitant]
     Route: 042
     Dates: start: 20070606
  35. PREDNISONE TAB [Concomitant]
     Route: 042
     Dates: start: 20070606
  36. STARCH [Concomitant]
     Route: 042
     Dates: start: 20070605, end: 20070605
  37. STARCH [Concomitant]
     Route: 042
     Dates: start: 20070607, end: 20070607
  38. NEUPOGEN [Concomitant]
     Route: 042
     Dates: start: 20070607, end: 20070609
  39. MORPHINE [Concomitant]
     Route: 042
     Dates: start: 20070604, end: 20070604
  40. FRAXIPARINE [Concomitant]
     Route: 042
     Dates: start: 20070604, end: 20070604
  41. POTASSIUM CHLORIDE [Concomitant]
     Route: 042
     Dates: start: 20070610, end: 20070615
  42. RED BLOOD CELLS [Concomitant]
     Route: 042
     Dates: start: 20070607, end: 20070607
  43. URISPAS [Concomitant]
     Route: 048
  44. CIPROFLOXACIN HCL [Concomitant]
     Route: 048
  45. ALL OTHER THERAPEUTIC PRODUCTS [Concomitant]
     Route: 048
  46. SERETIDE DISKUS [Concomitant]
     Route: 055

REACTIONS (2)
  - OEDEMA PERIPHERAL [None]
  - PNEUMOTHORAX [None]
